FAERS Safety Report 4474498-7 (Version None)
Quarter: 2004Q4

REPORT INFORMATION
  Report Type: 
  Country: None (occurrence: None)
  Receive Date: 20041014
  Receipt Date: 20041007
  Transmission Date: 20050328
  Serious: Yes (Life-Threatening, Hospitalization, Disabling)
  Sender: FDA-Public Use
  Company Number: US-MERCK-0410USA01204

PATIENT
  Age: 44 Year
  Sex: Male

DRUGS (2)
  1. NORVASC [Concomitant]
     Route: 065
  2. VIOXX [Suspect]
     Indication: ARTHRITIS
     Route: 048
     Dates: start: 20010101, end: 20040201

REACTIONS (1)
  - RENAL CELL CARCINOMA STAGE UNSPECIFIED [None]
